FAERS Safety Report 9906688 (Version 2)
Quarter: 2014Q1

REPORT INFORMATION
  Report Type: Spontaneous
  Country: US (occurrence: US)
  Receive Date: 20140218
  Receipt Date: 20140218
  Transmission Date: 20141002
  Serious: No
  Sender: FDA-Public Use
  Company Number: US-GILEAD-2012-0048763

PATIENT
  Sex: Female

DRUGS (2)
  1. LETAIRIS [Suspect]
     Indication: PULMONARY HYPERTENSION
     Dosage: 5 MG, UNK
     Route: 048
     Dates: start: 20111122
  2. LETAIRIS [Suspect]
     Indication: BEHCET^S SYNDROME

REACTIONS (7)
  - Pneumonia [Unknown]
  - Bronchitis [Unknown]
  - Respiratory tract infection [Unknown]
  - Influenza [Unknown]
  - Malaise [Unknown]
  - Angina pectoris [Unknown]
  - Chest pain [Unknown]
